FAERS Safety Report 9117242 (Version 1)
Quarter: 2013Q1

REPORT INFORMATION
  Report Type: Spontaneous
  Country: FR (occurrence: FR)
  Receive Date: 20130208
  Receipt Date: 20130208
  Transmission Date: 20140127
  Serious: Yes (Hospitalization)
  Sender: FDA-Public Use
  Company Number: FR-ROCHE-1183585

PATIENT
  Age: 94 Year
  Sex: Female

DRUGS (10)
  1. ROCEPHINE [Suspect]
     Indication: PRODUCT USED FOR UNKNOWN INDICATION
     Route: 042
     Dates: start: 20121209, end: 20121218
  2. GENTAMICINE [Suspect]
     Indication: PRODUCT USED FOR UNKNOWN INDICATION
     Route: 042
     Dates: start: 20121209, end: 20121211
  3. XARELTO [Suspect]
     Indication: PRODUCT USED FOR UNKNOWN INDICATION
     Route: 048
     Dates: start: 20121218, end: 20121220
  4. CALCIPARINE [Suspect]
     Indication: PRODUCT USED FOR UNKNOWN INDICATION
     Dosage: INCREASED TO 0.35 ML
     Route: 058
     Dates: start: 20121209, end: 20121210
  5. CORDARONE [Concomitant]
     Route: 048
  6. KARDEGIC [Concomitant]
     Route: 048
  7. SEROPLEX [Concomitant]
     Route: 048
  8. MOPRAL (FRANCE) [Concomitant]
     Route: 048
  9. LASILIX [Concomitant]
     Route: 048
  10. HEPARINE SODIQUE [Concomitant]
     Route: 065
     Dates: start: 20121211, end: 20121218

REACTIONS (2)
  - Hepatocellular injury [Recovering/Resolving]
  - Cholestasis [Recovering/Resolving]
